FAERS Safety Report 20676330 (Version 2)
Quarter: 2022Q2

REPORT INFORMATION
  Report Type: Report from Study
  Country: AT (occurrence: AT)
  Receive Date: 20220405
  Receipt Date: 20220504
  Transmission Date: 20220720
  Serious: Yes (Hospitalization)
  Sender: FDA-Public Use
  Company Number: AT-BRISTOL-MYERS SQUIBB COMPANY-2022-012643

PATIENT
  Age: 63 Year
  Sex: Male
  Weight: 85 kg

DRUGS (9)
  1. CETIRIZINE HYDROCHLORIDE [Concomitant]
     Active Substance: CETIRIZINE HYDROCHLORIDE
     Indication: Product used for unknown indication
     Dosage: 1 DOSAGE FORM=1 UNIT NOS?ONGOING
     Route: 048
     Dates: start: 20210107
  2. DEXIBUPROFEN [Concomitant]
     Active Substance: DEXIBUPROFEN
     Indication: Product used for unknown indication
     Dosage: ONGOING
     Route: 048
     Dates: start: 20010107
  3. COLDISTOP [Concomitant]
     Indication: Product used for unknown indication
     Dosage: 1 DOSAGE FORM=1 UNIT NOS?ONGOING
     Route: 048
     Dates: start: 20210107
  4. BISOPROLOL FUMARATE [Concomitant]
     Active Substance: BISOPROLOL FUMARATE
     Indication: Product used for unknown indication
     Dosage: ONGOING
     Route: 048
     Dates: start: 201908
  5. NOVORAPID [Concomitant]
     Active Substance: INSULIN ASPART
     Indication: Product used for unknown indication
     Dosage: 1 DOSAGE FORM=1 UNIT NOS?ONGOING
     Route: 058
     Dates: start: 20201225
  6. TOUJEO [Concomitant]
     Active Substance: INSULIN GLARGINE
     Indication: Product used for unknown indication
     Dosage: 1 DOSAGE FORM=10 UNIT NOS?ONGOING
     Route: 058
     Dates: start: 20210107
  7. GLANDOSANSPRAY [Concomitant]
     Indication: Product used for unknown indication
     Dosage: 1 DOSAGE FORM=1 UNIT NOS?ONGOING
     Route: 048
     Dates: start: 20210107
  8. VITROCAP N [Concomitant]
     Indication: Product used for unknown indication
     Dosage: 1 DOSAGE FORM=1 UNIT NOS?ONGOING
     Route: 048
     Dates: start: 20200806
  9. ELOMEL ISOTON [Concomitant]
     Indication: Product used for unknown indication
     Dosage: ONGOING
     Route: 042
     Dates: start: 20200403

REACTIONS (1)
  - Hypoglycaemia [Recovered/Resolved]

NARRATIVE: CASE EVENT DATE: 20220115
